FAERS Safety Report 10615242 (Version 1)
Quarter: 2014Q4

REPORT INFORMATION
  Report Type: Spontaneous
  Country: US (occurrence: None)
  Receive Date: 20141125
  Receipt Date: 20141125
  Transmission Date: 20150529
  Serious: Yes (Other)
  Sender: FDA-Public Use
  Company Number: None

PATIENT
  Age: 77 Year
  Sex: Male

DRUGS (1)
  1. IMBRUVICA [Suspect]
     Active Substance: IBRUTINIB
     Indication: MANTLE CELL LYMPHOMA
     Dosage: 140 MG, TAKE 2 DAILY, ORAL
     Route: 048
     Dates: start: 20140227

REACTIONS (8)
  - Fatigue [None]
  - Transient ischaemic attack [None]
  - Dysarthria [None]
  - Cardiac disorder [None]
  - Myalgia [None]
  - Gastric disorder [None]
  - Eye movement disorder [None]
  - Confusional state [None]

NARRATIVE: CASE EVENT DATE: 20141120
